FAERS Safety Report 25330266 (Version 1)
Quarter: 2025Q2

REPORT INFORMATION
  Report Type: Spontaneous
  Country: FR (occurrence: FR)
  Receive Date: 20250519
  Receipt Date: 20250519
  Transmission Date: 20250717
  Serious: Yes (Other)
  Sender: MYLAN
  Company Number: None

PATIENT
  Age: 69 Year
  Sex: Male

DRUGS (4)
  1. TAHOR [Suspect]
     Active Substance: ATORVASTATIN CALCIUM
     Indication: Hypercholesterolaemia
     Dosage: 20 MILLIGRAM, QD
     Dates: start: 20240901, end: 20250329
  2. TAHOR [Suspect]
     Active Substance: ATORVASTATIN CALCIUM
     Dosage: 20 MILLIGRAM, QD
     Route: 048
     Dates: start: 20240901, end: 20250329
  3. TAHOR [Suspect]
     Active Substance: ATORVASTATIN CALCIUM
     Dosage: 20 MILLIGRAM, QD
     Route: 048
     Dates: start: 20240901, end: 20250329
  4. TAHOR [Suspect]
     Active Substance: ATORVASTATIN CALCIUM
     Dosage: 20 MILLIGRAM, QD
     Dates: start: 20240901, end: 20250329

REACTIONS (1)
  - Muscle rupture [Recovering/Resolving]

NARRATIVE: CASE EVENT DATE: 20250323
